FAERS Safety Report 23728973 (Version 2)
Quarter: 2024Q2

REPORT INFORMATION
  Report Type: Spontaneous
  Country: NZ (occurrence: None)
  Receive Date: 20240410
  Receipt Date: 20240426
  Transmission Date: 20240716
  Serious: Yes (Hospitalization)
  Sender: FDA-Public Use
  Company Number: 2024A081724

PATIENT
  Age: 68 Year
  Sex: Male
  Weight: 106.1 kg

DRUGS (6)
  1. BRILINTA [Suspect]
     Active Substance: TICAGRELOR
     Indication: Product used for unknown indication
     Dosage: 15,16.DAILY DOSES
     Route: 048
  2. PLACEBO [Suspect]
     Active Substance: PLACEBO
     Indication: Cardiovascular disorder
     Route: 058
     Dates: start: 20230629
  3. ASPIRIN [Suspect]
     Active Substance: ASPIRIN
     Indication: Product used for unknown indication
  4. LANSOPRAZOLE [Concomitant]
     Active Substance: LANSOPRAZOLE
     Dates: start: 2014
  5. ATORVASTATIN [Concomitant]
     Active Substance: ATORVASTATIN
     Dates: start: 20230523
  6. PERINDOPRIL [Concomitant]
     Active Substance: PERINDOPRIL
     Dates: start: 20230523

REACTIONS (2)
  - Rectal haemorrhage [Recovered/Resolved]
  - Condition aggravated [Recovered/Resolved]

NARRATIVE: CASE EVENT DATE: 20240312
